FAERS Safety Report 16909403 (Version 1)
Quarter: 2019Q4

REPORT INFORMATION
  Report Type: Spontaneous
  Country: JP (occurrence: JP)
  Receive Date: 20191011
  Receipt Date: 20191011
  Transmission Date: 20200122
  Serious: Yes (Death, Other)
  Sender: FDA-Public Use
  Company Number: JP-ACTELION-A-CH2019-196522

PATIENT
  Age: 60 Year
  Sex: Male
  Weight: 71 kg

DRUGS (5)
  1. HEPARIN [Concomitant]
     Active Substance: HEPARIN SODIUM
  2. BOSENTAN. [Suspect]
     Active Substance: BOSENTAN
     Indication: PULMONARY ARTERIAL HYPERTENSION
     Route: 048
  3. AMLODIPINE [Concomitant]
     Active Substance: AMLODIPINE BESYLATE
  4. PREDNISOLONE. [Concomitant]
     Active Substance: PREDNISOLONE
  5. OLMESARTAN [Concomitant]
     Active Substance: OLMESARTAN

REACTIONS (9)
  - Therapeutic product effect incomplete [Unknown]
  - Respiratory failure [Unknown]
  - Ventricular tachycardia [Unknown]
  - Biopsy lymph gland abnormal [Unknown]
  - Lymphoid tissue hyperplasia [Unknown]
  - Cardio-respiratory arrest [Fatal]
  - Pulmonary arterial hypertension [Fatal]
  - Disease progression [Fatal]
  - Oxygen saturation decreased [Unknown]
